FAERS Safety Report 8866553 (Version 1)
Quarter: 2012Q4

REPORT INFORMATION
  Report Type: 
  Country: JP (occurrence: JP)
  Receive Date: 20121025
  Receipt Date: 20121025
  Transmission Date: 20130627
  Serious: Yes (Other)
  Sender: FDA-Public Use
  Company Number: JP-ABBOTT-12P-087-0999866-00

PATIENT

DRUGS (1)
  1. CYCLOSPORINE [Suspect]
     Indication: IMMUNOSUPPRESSION

REACTIONS (1)
  - Leukoencephalopathy [Unknown]
